FAERS Safety Report 5607649-9 (Version None)
Quarter: 2008Q1

REPORT INFORMATION
  Report Type: 
  Country: None (occurrence: None)
  Receive Date: 20080125
  Receipt Date: 20080110
  Transmission Date: 20080703
  Serious: Yes (Life-Threatening, Hospitalization)
  Sender: FDA-Public Use
  Company Number: DSA_31335_2008

PATIENT
  Sex: Female

DRUGS (7)
  1. DILZEM /00489702/ (DILZEM - DILTIAZEM HYDROCHLORIDE) (NOT SPECIFIED) [Suspect]
     Indication: ESSENTIAL HYPERTENSION
     Dosage: (60 MG BID ORAL)
     Route: 048
     Dates: start: 20070901
  2. CIPROFLOXACIN [Suspect]
     Indication: DRUG USE FOR UNKNOWN INDICATION
     Dosage: (250 MG BID ORAL)
     Route: 048
     Dates: start: 20071019, end: 20071021
  3. INVIRASE [Suspect]
     Indication: ANTIRETROVIRAL THERAPY
     Dosage: (500 MG BID ORAL)
     Route: 048
  4. KALETRA [Suspect]
     Indication: ANTIRETROVIRAL THERAPY
     Dosage: (133.3 MG BID ORAL)
     Route: 048
  5. ZIAGEN [Concomitant]
  6. METRONIDAZOLE HCL [Concomitant]
  7. NEXIUM [Concomitant]

REACTIONS (4)
  - BRADYCARDIA [None]
  - ELECTROCARDIOGRAM QT PROLONGED [None]
  - PYREXIA [None]
  - RENAL ABSCESS [None]
